FAERS Safety Report 10175019 (Version 3)
Quarter: 2014Q3

REPORT INFORMATION
  Report Type: Spontaneous
  Country: CL (occurrence: CL)
  Receive Date: 20140515
  Receipt Date: 20140709
  Transmission Date: 20150326
  Serious: Yes (Hospitalization, Other)
  Sender: FDA-Public Use
  Company Number: PHHY2014CL058166

PATIENT
  Age: 50 Year
  Sex: Female

DRUGS (1)
  1. GILENYA [Suspect]
     Active Substance: FINGOLIMOD HYDROCHLORIDE
     Indication: MULTIPLE SCLEROSIS
     Dosage: UNK
     Route: 048
     Dates: start: 20140424, end: 20140519

REACTIONS (8)
  - Vascular pseudoaneurysm [Unknown]
  - Carotid artery dissection [Unknown]
  - Hepatitis B virus test positive [Unknown]
  - Headache [Unknown]
  - Rash [Unknown]
  - Blood pressure systolic increased [Unknown]
  - Vertebral artery dissection [Unknown]
  - Transaminases increased [Unknown]
